FAERS Safety Report 6956978-5 (Version None)
Quarter: 2010Q3

REPORT INFORMATION
  Report Type: 
  Country: None (occurrence: None)
  Receive Date: 20100827
  Receipt Date: 20100827
  Transmission Date: 20110219
  Serious: Yes (Other)
  Sender: FDA-Public Use
  Company Number: None

PATIENT
  Age: 77 Year
  Sex: Male

DRUGS (6)
  1. DILAUDID [Suspect]
     Indication: DIVERTICULITIS
     Dosage: 1MG IV BOLUS
     Route: 040
     Dates: start: 20100616, end: 20100616
  2. DILAUDID [Suspect]
     Indication: PAIN
     Dosage: 1MG IV BOLUS
     Route: 040
     Dates: start: 20100616, end: 20100616
  3. TORADOL [Concomitant]
  4. FLGYL [Concomitant]
  5. LEVAQUIN [Concomitant]
  6. ZOFRAN [Concomitant]

REACTIONS (4)
  - BACK PAIN [None]
  - EAR PAIN [None]
  - FEELING ABNORMAL [None]
  - NECK PAIN [None]
